FAERS Safety Report 20489492 (Version 1)
Quarter: 2022Q1

REPORT INFORMATION
  Report Type: Spontaneous
  Country: CN (occurrence: CN)
  Receive Date: 20220218
  Receipt Date: 20220218
  Transmission Date: 20220423
  Serious: Yes (Other)
  Sender: FDA-Public Use
  Company Number: CN-PFIZER INC-202200239201

PATIENT
  Age: 72 Year
  Sex: Female

DRUGS (10)
  1. CYTARABINE [Suspect]
     Active Substance: CYTARABINE
     Indication: Acute lymphocytic leukaemia
     Dosage: 0.15 G, ONCE A DAY
     Route: 041
     Dates: start: 20211106, end: 20211108
  2. CYTARABINE [Suspect]
     Active Substance: CYTARABINE
     Dosage: 0.05 G, ONCE A DAY
     Route: 037
     Dates: start: 20211109, end: 20211109
  3. CYTARABINE [Suspect]
     Active Substance: CYTARABINE
     Dosage: 0.15 G, ONCE A DAY
     Route: 041
     Dates: start: 20211113, end: 20211115
  4. METHOTREXATE [Suspect]
     Active Substance: METHOTREXATE
     Indication: Acute lymphocytic leukaemia
     Dosage: 5 ML (TOOK 2 ML, AS REPORTED), ONCE A DAY
     Route: 037
     Dates: start: 20211109, end: 20211109
  5. CYCLOPHOSPHAMIDE [Suspect]
     Active Substance: CYCLOPHOSPHAMIDE
     Indication: Acute lymphocytic leukaemia
     Dosage: 1.1 G, WEEKLY
     Route: 041
     Dates: start: 20211106, end: 20211113
  6. DEXAMETHASONE SODIUM PHOSPHATE [Concomitant]
     Active Substance: DEXAMETHASONE SODIUM PHOSPHATE
     Indication: Vehicle solution use
     Dosage: 2.5 MG, ONCE A DAY
     Route: 037
     Dates: start: 20211109, end: 20211109
  7. SODIUM CHLORIDE [Concomitant]
     Active Substance: SODIUM CHLORIDE
     Indication: Vehicle solution use
     Dosage: 100 ML, WEEKLY
     Route: 041
     Dates: start: 20211106, end: 20211113
  8. SODIUM CHLORIDE [Concomitant]
     Active Substance: SODIUM CHLORIDE
     Dosage: 100 ML, ONCE A DAY
     Route: 041
     Dates: start: 20211106, end: 20211108
  9. SODIUM CHLORIDE [Concomitant]
     Active Substance: SODIUM CHLORIDE
     Dosage: 100 ML, ONCE A DAY
     Route: 037
     Dates: start: 20211109, end: 20211109
  10. SODIUM CHLORIDE [Concomitant]
     Active Substance: SODIUM CHLORIDE
     Dosage: 100 ML, ONCE A DAY
     Route: 041
     Dates: start: 20211113, end: 20211115

REACTIONS (3)
  - Cytopenia [Recovered/Resolved]
  - White blood cell count decreased [Recovered/Resolved]
  - Neutrophil count decreased [Recovered/Resolved]

NARRATIVE: CASE EVENT DATE: 20211123
